FAERS Safety Report 18121462 (Version 2)
Quarter: 2022Q4

REPORT INFORMATION
  Report Type: Spontaneous
  Country: US (occurrence: US)
  Receive Date: 20200807
  Receipt Date: 20221212
  Transmission Date: 20230112
  Serious: No
  Sender: FDA-Public Use
  Company Number: US-JNJFOC-20200806619

PATIENT
  Age: 75 Year

DRUGS (1)
  1. IMODIUM [Suspect]
     Active Substance: LOPERAMIDE HYDROCHLORIDE
     Indication: Colon cancer
     Route: 065

REACTIONS (2)
  - Product use in unapproved indication [Unknown]
  - Product blister packaging issue [Unknown]
